FAERS Safety Report 21739997 (Version 1)
Quarter: 2022Q4

REPORT INFORMATION
  Report Type: Spontaneous
  Country: US (occurrence: US)
  Receive Date: 20221216
  Receipt Date: 20221216
  Transmission Date: 20230113
  Serious: No
  Sender: FDA-Public Use
  Company Number: US-REGENERON PHARMACEUTICALS, INC.-2022-070047

PATIENT
  Sex: Male

DRUGS (8)
  1. EYLEA [Suspect]
     Active Substance: AFLIBERCEPT
     Indication: Neovascular age-related macular degeneration
     Dosage: 2 MG, FREQUENCY: VARIES, OD 2ND DOSE (STRENGTH: 2MG/0.05ML)
     Dates: start: 20200805, end: 20200805
  2. EYLEA [Suspect]
     Active Substance: AFLIBERCEPT
     Indication: Subretinal fluid
     Dosage: 2 MG, FREQUENCY: VARIES, OD 3RD DOSE (STRENGTH: 2MG/0.05ML)
     Dates: start: 20201008, end: 20201008
  3. EYLEA [Suspect]
     Active Substance: AFLIBERCEPT
     Indication: Choroidal neovascularisation
     Dosage: 2 MG, FREQUENCY: VARIES, OS 1ST DOSE (STRENGTH: 2MG/0.05ML)
     Dates: start: 20220222, end: 20220222
  4. EYLEA [Suspect]
     Active Substance: AFLIBERCEPT
     Dosage: 2 MG, FREQUENCY: VARIES, OD 4TH DOSE (STRENGTH: 2MG/0.05ML)
     Dates: start: 20220407, end: 20220407
  5. QBRELIS [Concomitant]
     Active Substance: LISINOPRIL
     Indication: Product used for unknown indication
     Dosage: UNK
  6. ATORVASTATIN [Concomitant]
     Active Substance: ATORVASTATIN
     Indication: Product used for unknown indication
  7. OMEPRAZOLE [Concomitant]
     Active Substance: OMEPRAZOLE
     Indication: Product used for unknown indication
  8. VITAMIN C [Concomitant]
     Active Substance: ASCORBIC ACID
     Indication: Product used for unknown indication

REACTIONS (10)
  - Product dose omission issue [Not Recovered/Not Resolved]
  - Glare [Not Recovered/Not Resolved]
  - Photophobia [Not Recovered/Not Resolved]
  - Visual impairment [Not Recovered/Not Resolved]
  - Visual acuity reduced [Recovered/Resolved]
  - Swelling of eyelid [Recovered/Resolved]
  - Injection site pain [Not Recovered/Not Resolved]
  - Vision blurred [Not Recovered/Not Resolved]
  - Ocular hyperaemia [Recovered/Resolved]
  - Vitreous floaters [Not Recovered/Not Resolved]

NARRATIVE: CASE EVENT DATE: 20220222
